FAERS Safety Report 4459259-7 (Version None)
Quarter: 2004Q3

REPORT INFORMATION
  Report Type: 
  Country: None (occurrence: None)
  Receive Date: 20040922
  Receipt Date: 20040922
  Transmission Date: 20050211
  Serious: Yes (Other)
  Sender: FDA-Public Use
  Company Number: None

PATIENT
  Age: 53 Year
  Sex: Male
  Weight: 90.7194 kg

DRUGS (1)
  1. ERBITUX  250 MG / - [Suspect]
     Indication: COLORECTAL CANCER RECURRENT
     Dosage: 538 MG QWK X 6 DOSES INTRAVENOUS
     Route: 042
     Dates: start: 20040810, end: 20040915

REACTIONS (2)
  - BODY TEMPERATURE INCREASED [None]
  - EOSINOPHILIA [None]
